FAERS Safety Report 13621568 (Version 1)
Quarter: 2017Q2

REPORT INFORMATION
  Report Type: Spontaneous
  Country: US (occurrence: US)
  Receive Date: 20170607
  Receipt Date: 20170607
  Transmission Date: 20170830
  Serious: Yes (Hospitalization)
  Sender: FDA-Public Use
  Company Number: US-CARDINAL HEALTH 414, LLC-2021649

PATIENT
  Age: 67 Year
  Sex: Male
  Weight: 72 kg

DRUGS (3)
  1. FLUDEOXYGLUCOSE F-18. [Suspect]
     Active Substance: FLUDEOXYGLUCOSE F-18
     Indication: NEOPLASM MALIGNANT
     Route: 042
     Dates: start: 20170517, end: 20170517
  2. FLUDEOXYGLUCOSE F-18. [Suspect]
     Active Substance: FLUDEOXYGLUCOSE F-18
     Indication: POSITRON EMISSION TOMOGRAM
     Route: 042
     Dates: start: 20170517, end: 20170517
  3. ISOVUE 300 [Concomitant]
     Active Substance: IOPAMIDOL
     Dates: start: 20170517, end: 20170517

REACTIONS (9)
  - Abdominal pain [Recovered/Resolved with Sequelae]
  - Gastroenteritis viral [Recovered/Resolved with Sequelae]
  - Diarrhoea [Recovered/Resolved with Sequelae]
  - Chills [Recovered/Resolved with Sequelae]
  - Night sweats [Recovered/Resolved with Sequelae]
  - Urinary tract infection [Recovered/Resolved with Sequelae]
  - Headache [Recovered/Resolved with Sequelae]
  - Dehydration [Recovered/Resolved with Sequelae]
  - Pyrexia [Recovered/Resolved with Sequelae]

NARRATIVE: CASE EVENT DATE: 20170517
